FAERS Safety Report 4957322-5 (Version None)
Quarter: 2006Q1

REPORT INFORMATION
  Report Type: 
  Country: None (occurrence: None)
  Receive Date: 20060323
  Receipt Date: 20060313
  Transmission Date: 20060701
  Serious: Yes (Other)
  Sender: FDA-Public Use
  Company Number: CIP05002928

PATIENT
  Age: 76 Year
  Sex: Male
  Weight: 80.7 kg

DRUGS (10)
  1. ACTONEL [Suspect]
     Indication: OSTEOPOROSIS
     Dosage: 35 MG ONCE WEEKLY, ORAL
     Route: 048
     Dates: start: 20030501, end: 20051213
  2. MULTI-VIT (VITAMINS NOS) [Concomitant]
  3. GLUCOTROL XL [Concomitant]
  4. COZAAR [Concomitant]
  5. COUMADIN [Concomitant]
  6. ZOCOR [Concomitant]
  7. METFORMIN HCL [Concomitant]
  8. RYTHMOL [Concomitant]
  9. NEXIUM [Concomitant]
  10. CALCIUM (CALCIUM) [Concomitant]

REACTIONS (4)
  - FAILURE OF IMPLANT [None]
  - LUNG NEOPLASM MALIGNANT [None]
  - OSTEONECROSIS [None]
  - PAIN IN JAW [None]
